FAERS Safety Report 18166344 (Version 1)
Quarter: 2020Q3

REPORT INFORMATION
  Report Type: Spontaneous
  Country: US (occurrence: US)
  Receive Date: 20200818
  Receipt Date: 20200818
  Transmission Date: 20201103
  Serious: No
  Sender: FDA-Public Use
  Company Number: US-OTSUKA-2019_029810

PATIENT
  Sex: Male

DRUGS (2)
  1. ABILIFY [Suspect]
     Active Substance: ARIPIPRAZOLE
     Indication: BIPOLAR I DISORDER
     Dosage: 5 MG, QD
     Route: 048
     Dates: start: 2007
  2. ABILIFY [Suspect]
     Active Substance: ARIPIPRAZOLE
     Indication: ASTHENIA

REACTIONS (6)
  - Product use in unapproved indication [Unknown]
  - Withdrawal syndrome [Recovered/Resolved]
  - Blood bilirubin increased [Unknown]
  - Sleep disorder [Not Recovered/Not Resolved]
  - Stress [Recovered/Resolved]
  - Panic attack [Recovered/Resolved]
